FAERS Safety Report 16423413 (Version 2)
Quarter: 2019Q3

REPORT INFORMATION
  Report Type: Report from Study
  Country: DE (occurrence: DE)
  Receive Date: 20190612
  Receipt Date: 20190903
  Transmission Date: 20191004
  Serious: Yes (Hospitalization, Other)
  Sender: FDA-Public Use
  Company Number: PHHY2018DE165139

PATIENT
  Sex: Female
  Weight: 70 kg

DRUGS (5)
  1. NOVAMINSULFON [Suspect]
     Active Substance: METAMIZOLE
     Indication: PAIN MANAGEMENT
     Dosage: 30 GTT, PRN
     Route: 048
     Dates: start: 2018, end: 20180923
  2. NOVAMINSULFON [Suspect]
     Active Substance: METAMIZOLE
     Dosage: 1X1G, UNK
     Route: 042
     Dates: start: 20190428, end: 20190429
  3. NOVAMINSULFON [Suspect]
     Active Substance: METAMIZOLE
     Dosage: 3X1G/40 DROPS/DAILY, UNK
     Route: 048
     Dates: start: 20190429, end: 20190503
  4. KISQALI [Suspect]
     Active Substance: RIBOCICLIB
     Indication: BREAST CANCER METASTATIC
     Dosage: 600 MG (21 DAYS)
     Route: 048
     Dates: start: 20180912, end: 20180923
  5. LETROZOLE. [Suspect]
     Active Substance: LETROZOLE
     Indication: BREAST CANCER METASTATIC
     Dosage: 2.5 MG, UNK (28)
     Route: 048
     Dates: start: 20180912, end: 20180923

REACTIONS (13)
  - Pain in extremity [Recovering/Resolving]
  - Blood sodium decreased [Unknown]
  - Urine ketone body present [Unknown]
  - Blood potassium decreased [Unknown]
  - Peripheral swelling [Recovering/Resolving]
  - Gastroenteritis [Recovered/Resolved]
  - White blood cell count decreased [Unknown]
  - Dyspnoea [Recovered/Resolved]
  - Haemoglobin decreased [Unknown]
  - Malignant pleural effusion [Unknown]
  - C-reactive protein increased [Unknown]
  - Mobility decreased [Recovering/Resolving]
  - Platelet count decreased [Unknown]

NARRATIVE: CASE EVENT DATE: 20180923
